FAERS Safety Report 14419553 (Version 3)
Quarter: 2018Q2

REPORT INFORMATION
  Report Type: Not Available
  Country: US (occurrence: US)
  Receive Date: 20180122
  Receipt Date: 20180417
  Transmission Date: 20180711
  Serious: No
  Sender: FDA-Public Use
  Company Number: US-NEUROCRINE BIOSCIENCES INC.-2017NBI01921

PATIENT
  Age: 43 Year
  Sex: Male

DRUGS (16)
  1. INGREZZA [Suspect]
     Active Substance: VALBENAZINE
     Indication: TARDIVE DYSKINESIA
     Route: 048
     Dates: start: 20171116, end: 20171122
  2. ABILIFY [Concomitant]
     Active Substance: ARIPIPRAZOLE
  3. HALDOL [Concomitant]
     Active Substance: HALOPERIDOL
  4. ZOFRAN [Concomitant]
     Active Substance: ONDANSETRON HYDROCHLORIDE
  5. INGREZZA [Suspect]
     Active Substance: VALBENAZINE
     Route: 048
     Dates: start: 20171123, end: 20180103
  6. WELLBUTRIN [Concomitant]
     Active Substance: BUPROPION HYDROCHLORIDE
  7. KLONOPIN [Concomitant]
     Active Substance: CLONAZEPAM
  8. FLONASE [Concomitant]
     Active Substance: FLUTICASONE PROPIONATE
  9. HUMALOG [Concomitant]
     Active Substance: INSULIN LISPRO
  10. SINGULAIR [Concomitant]
     Active Substance: MONTELUKAST SODIUM
  11. MAGNESIUM [Concomitant]
     Active Substance: MAGNESIUM
  12. MELATONIN [Concomitant]
     Active Substance: MELATONIN
  13. TRAZODONE [Concomitant]
     Active Substance: TRAZODONE HYDROCHLORIDE
  14. ASPIRIN. [Concomitant]
     Active Substance: ASPIRIN
  15. LIPITOR [Concomitant]
     Active Substance: ATORVASTATIN CALCIUM
  16. TRINTELLIX [Concomitant]
     Active Substance: VORTIOXETINE HYDROBROMIDE

REACTIONS (7)
  - Fatigue [Recovered/Resolved]
  - Drug ineffective [None]
  - Pain in extremity [Recovered/Resolved]
  - Somnolence [Recovered/Resolved]
  - Head injury [Recovered/Resolved]
  - Sedation [Recovered/Resolved]
  - Fall [Recovered/Resolved]

NARRATIVE: CASE EVENT DATE: 20171116
